FAERS Safety Report 10261088 (Version 1)
Quarter: 2014Q2

REPORT INFORMATION
  Report Type: Spontaneous
  Country: US (occurrence: US)
  Receive Date: 20140626
  Receipt Date: 20140626
  Transmission Date: 20141212
  Serious: Yes (Other)
  Sender: FDA-Public Use
  Company Number: US-DRREDDYS-USA/USA/14/0039324

PATIENT
  Age: 61 Year
  Sex: Female

DRUGS (1)
  1. ZOLEDRONIC ACID INJECTION 4 MG/5 ML [Suspect]
     Indication: METASTASES TO BONE
     Route: 065

REACTIONS (1)
  - Osteonecrosis of jaw [Unknown]
